FAERS Safety Report 7576451-3 (Version None)
Quarter: 2011Q2

REPORT INFORMATION
  Report Type: 
  Country: None (occurrence: None)
  Receive Date: 20110628
  Receipt Date: 20110120
  Transmission Date: 20111010
  Serious: Yes (Hospitalization, Other)
  Sender: FDA-Public Use
  Company Number: US-BAYER-201021850NA

PATIENT
  Age: 33 Year
  Sex: Female
  Weight: 105.67 kg

DRUGS (8)
  1. YAZ [Suspect]
     Indication: PRODUCT USED FOR UNKNOWN INDICATION
     Route: 048
     Dates: start: 20050801, end: 20051201
  2. LASIX [Concomitant]
     Dosage: 20 MG, UNK
  3. PIROXICAM [Concomitant]
  4. COMBUNOX [Concomitant]
  5. NAPROXEN [Concomitant]
  6. YASMIN [Suspect]
     Indication: CONTRACEPTION
     Dosage: UNK UNK, QD
     Route: 048
     Dates: start: 20050401, end: 20051201
  7. YAZ [Suspect]
     Route: 048
     Dates: start: 20070301, end: 20070401
  8. YASMIN [Suspect]
     Indication: MENSTRUATION IRREGULAR
     Route: 048
     Dates: start: 20070301, end: 20070401

REACTIONS (4)
  - CHOLELITHIASIS [None]
  - CHOLECYSTITIS CHRONIC [None]
  - DEEP VEIN THROMBOSIS [None]
  - CHOLECYSTECTOMY [None]
